FAERS Safety Report 8374613-9 (Version None)
Quarter: 2012Q2

REPORT INFORMATION
  Report Type: 
  Country: None (occurrence: None)
  Receive Date: 20120521
  Receipt Date: 20110408
  Transmission Date: 20120825
  Serious: No
  Sender: FDA-Public Use
  Company Number: US-ASTRAZENECA-2011SE21594

PATIENT
  Sex: Female

DRUGS (1)
  1. PRILOSEC OTC [Suspect]
     Route: 048
     Dates: start: 20110408, end: 20110408

REACTIONS (5)
  - ABDOMINAL PAIN UPPER [None]
  - CRYING [None]
  - DEPRESSED MOOD [None]
  - HEADACHE [None]
  - MOOD ALTERED [None]
